FAERS Safety Report 6619515-0 (Version None)
Quarter: 2010Q1

REPORT INFORMATION
  Report Type: 
  Country: None (occurrence: None)
  Receive Date: 20100222
  Receipt Date: 20100208
  Transmission Date: 20100710
  Serious: Yes (Other)
  Sender: FDA-Public Use
  Company Number: 20091109CINRY1250

PATIENT
  Age: 66 Year
  Sex: Male

DRUGS (2)
  1. CINRYZE [Suspect]
     Indication: ANGIOEDEMA
     Dosage: (1000 UNIT, TUES, THRUS AND SAT), INTRAVENOUS (1000 UNIT, 1 IN 1 WK), INTRAVENOUS
     Route: 042
     Dates: start: 20090728, end: 20100101
  2. CINRYZE [Suspect]
     Indication: ANGIOEDEMA
     Dosage: (1000 UNIT, TUES, THRUS AND SAT), INTRAVENOUS (1000 UNIT, 1 IN 1 WK), INTRAVENOUS
     Route: 042
     Dates: start: 20100115

REACTIONS (6)
  - ANGIOEDEMA [None]
  - BACK PAIN [None]
  - FATIGUE [None]
  - GASTROENTERITIS VIRAL [None]
  - HEADACHE [None]
  - URTICARIA [None]
